FAERS Safety Report 4327780-8 (Version None)
Quarter: 2004Q1

REPORT INFORMATION
  Report Type: 
  Country: None (occurrence: None)
  Receive Date: 20040331
  Receipt Date: 20040303
  Transmission Date: 20041129
  Serious: Yes (Other)
  Sender: FDA-Public Use
  Company Number: 200412815GDDC

PATIENT
  Age: 15 Year
  Sex: Female

DRUGS (1)
  1. DESMOTABS [Suspect]
     Indication: ENURESIS
     Route: 048
     Dates: start: 20031223, end: 20040208

REACTIONS (4)
  - ABNORMAL BEHAVIOUR [None]
  - ANOREXIA [None]
  - CRYING [None]
  - EMOTIONAL DISORDER [None]
